FAERS Safety Report 21467613 (Version 1)
Quarter: 2022Q4

REPORT INFORMATION
  Report Type: Spontaneous
  Country: US (occurrence: US)
  Receive Date: 20221017
  Receipt Date: 20221017
  Transmission Date: 20230112
  Serious: No
  Sender: FDA-Public Use
  Company Number: US-ALLERGAN-2139224US

PATIENT
  Age: 46 Year
  Sex: Female

DRUGS (3)
  1. LINZESS [Suspect]
     Active Substance: LINACLOTIDE
     Indication: Constipation
     Dosage: 3 DF, QD
  2. LINZESS [Suspect]
     Active Substance: LINACLOTIDE
     Dosage: SEPARATED DOSES BY A WEEK
  3. LINZESS [Suspect]
     Active Substance: LINACLOTIDE
     Dosage: 1 DF, QD

REACTIONS (3)
  - Inappropriate schedule of product administration [Unknown]
  - Incorrect dose administered [Unknown]
  - Drug ineffective [Unknown]
